FAERS Safety Report 8301208-5 (Version None)
Quarter: 2012Q2

REPORT INFORMATION
  Report Type: 
  Country: None (occurrence: None)
  Receive Date: 20120420
  Receipt Date: 20120420
  Transmission Date: 20120825
  Serious: Yes (Other)
  Sender: FDA-Public Use
  Company Number: None

PATIENT
  Age: 42 Year
  Sex: Male
  Weight: 77.11 kg

DRUGS (1)
  1. EVACUANT [Suspect]
     Indication: SPINAL CORD INJURY
     Route: 054
     Dates: start: 20120101, end: 20120418

REACTIONS (3)
  - INFREQUENT BOWEL MOVEMENTS [None]
  - PRODUCT SUBSTITUTION ISSUE [None]
  - AUTONOMIC DYSREFLEXIA [None]
